FAERS Safety Report 8564238-4 (Version None)
Quarter: 2012Q3

REPORT INFORMATION
  Report Type: 
  Country: None (occurrence: None)
  Receive Date: 20120803
  Receipt Date: 20120720
  Transmission Date: 20120928
  Serious: No
  Sender: FDA-Public Use
  Company Number: JP-JNJFOC-20120712247

PATIENT

DRUGS (2)
  1. FENTANYL CITRATE [Suspect]
     Indication: CANCER PAIN
     Route: 065
  2. FENTANYL CITRATE [Suspect]
     Route: 065

REACTIONS (2)
  - DRUG PRESCRIBING ERROR [None]
  - INAPPROPRIATE SCHEDULE OF DRUG ADMINISTRATION [None]
